FAERS Safety Report 6590068-9 (Version None)
Quarter: 2010Q1

REPORT INFORMATION
  Report Type: 
  Country: None (occurrence: None)
  Receive Date: 20100219
  Receipt Date: 20100215
  Transmission Date: 20100710
  Serious: Yes (Death, Hospitalization)
  Sender: FDA-Public Use
  Company Number: PHHY2010DE09022

PATIENT

DRUGS (3)
  1. EXELON [Suspect]
     Indication: DEMENTIA ALZHEIMER'S TYPE
     Dosage: 4.6 MG/24 HOUR PATCH
     Route: 062
     Dates: start: 20091012
  2. LEVODOPA [Concomitant]
     Indication: PARKINSON'S DISEASE
  3. REQUIP [Concomitant]
     Indication: PARKINSON'S DISEASE

REACTIONS (2)
  - AKINESIA [None]
  - PNEUMONIA ASPIRATION [None]
